FAERS Safety Report 23155992 (Version 1)
Quarter: 2023Q4

REPORT INFORMATION
  Report Type: Spontaneous
  Country: KR (occurrence: KR)
  Receive Date: 20231107
  Receipt Date: 20231107
  Transmission Date: 20240110
  Serious: No
  Sender: FDA-Public Use
  Company Number: KR-SCALL-2023-APC-026772

PATIENT
  Age: 54 Year
  Sex: Male

DRUGS (2)
  1. DUTASTERIDE [Suspect]
     Active Substance: DUTASTERIDE
     Indication: Alopecia
     Dosage: 1 DF, QD
     Route: 065
  2. PROSCAR [Suspect]
     Active Substance: FINASTERIDE

REACTIONS (7)
  - Anxiety [Unknown]
  - Planning to become pregnant [Unknown]
  - Circumstance or information capable of leading to medication error [Unknown]
  - Product prescribing issue [Unknown]
  - Product use issue [Unknown]
  - Inappropriate schedule of product discontinuation [Unknown]
  - Drug ineffective [Unknown]
